FAERS Safety Report 22037426 (Version 2)
Quarter: 2023Q1

REPORT INFORMATION
  Report Type: Spontaneous
  Country: JP (occurrence: JP)
  Receive Date: 20230226
  Receipt Date: 20230315
  Transmission Date: 20230418
  Serious: Yes (Hospitalization)
  Sender: FDA-Public Use
  Company Number: JP-DSJP-DSJ-2023-106911

PATIENT

DRUGS (1)
  1. DENOSUMAB [Suspect]
     Active Substance: DENOSUMAB
     Indication: Product used for unknown indication
     Dosage: 120 MG, ONCE EVERY 4 WK
     Route: 058

REACTIONS (1)
  - Osteitis [Unknown]

NARRATIVE: CASE EVENT DATE: 20230220
